FAERS Safety Report 7804406-X (Version None)
Quarter: 2011Q4

REPORT INFORMATION
  Report Type: 
  Country: None (occurrence: None)
  Receive Date: 20111010
  Receipt Date: 20110927
  Transmission Date: 20120403
  Serious: Yes (Disabling)
  Sender: FDA-Public Use
  Company Number: AU-ROCHE-790268

PATIENT
  Sex: Male
  Weight: 85 kg

DRUGS (7)
  1. VINCRISTINE SULFATE [Suspect]
     Indication: PRODUCT USED FOR UNKNOWN INDICATION
     Route: 042
  2. GRANISETRON [Suspect]
     Indication: PRODUCT USED FOR UNKNOWN INDICATION
     Route: 042
  3. CYCLOPHOSPHAMIDE [Suspect]
     Indication: PRODUCT USED FOR UNKNOWN INDICATION
     Route: 042
  4. DOXORUBICIN HCL [Suspect]
     Indication: PRODUCT USED FOR UNKNOWN INDICATION
     Route: 040
  5. METHOTREXATE [Suspect]
     Indication: PRODUCT USED FOR UNKNOWN INDICATION
     Dosage: FREQUENCY: 1 TIME, ROUTE: INTRAETHICAL
     Route: 050
  6. PEGFILGRASTIM [Suspect]
     Indication: CHEMOTHERAPY
     Route: 058
  7. MABTHERA [Suspect]
     Indication: PRODUCT USED FOR UNKNOWN INDICATION
     Dosage: FRE:FORTNIGHTLY
     Route: 042

REACTIONS (3)
  - HEADACHE [None]
  - PHOTOSENSITIVITY REACTION [None]
  - MUSCULOSKELETAL STIFFNESS [None]
